FAERS Safety Report 4388595-8 (Version None)
Quarter: 2004Q2

REPORT INFORMATION
  Report Type: 
  Country: None (occurrence: None)
  Receive Date: 20040624
  Receipt Date: 20040608
  Transmission Date: 20050107
  Serious: Yes (Death)
  Sender: FDA-Public Use
  Company Number: B0335117A

PATIENT
  Age: 40 Year
  Sex: Male

DRUGS (9)
  1. ZIAGEN [Suspect]
  2. EPIVIR [Suspect]
  3. MYCOPHENOLATE MOFETIL (MYCOPHENOLATE MOFETIL) [Suspect]
     Indication: IMMUNOSUPPRESSION
  4. EFAVIRENZ (EFAVIRENZ) [Suspect]
  5. DIDANOSINE (DIDANOSINE) [Suspect]
  6. TENOFOVIR (TENOFOVIR) [Suspect]
  7. STAVUDINE [Concomitant]
  8. INTERFERON [Concomitant]
  9. TACROLIMUS [Concomitant]

REACTIONS (13)
  - BLOOD DISORDER [None]
  - CEREBRAL HAEMORRHAGE [None]
  - CHOLESTASIS [None]
  - DRUG INTERACTION [None]
  - GRAND MAL CONVULSION [None]
  - HEPATIC FUNCTION ABNORMAL [None]
  - HEPATIC NECROSIS [None]
  - HEPATIC STEATOSIS [None]
  - HYPERTENSION [None]
  - INJURY [None]
  - MITOCHONDRIAL TOXICITY [None]
  - NAUSEA [None]
  - VOMITING [None]
